FAERS Safety Report 4877590-8 (Version None)
Quarter: 2006Q1

REPORT INFORMATION
  Report Type: 
  Country: None (occurrence: None)
  Receive Date: 20060111
  Receipt Date: 20060106
  Transmission Date: 20060701
  Serious: Yes (Hospitalization)
  Sender: FDA-Public Use
  Company Number: DE-GLAXOSMITHKLINE-D0048395A

PATIENT
  Sex: Female

DRUGS (1)
  1. MALARONE [Suspect]
     Route: 065

REACTIONS (4)
  - ARRHYTHMIA [None]
  - DIZZINESS [None]
  - HALLUCINATION [None]
  - TACHYCARDIA [None]
